FAERS Safety Report 10172033 (Version 2)
Quarter: 2014Q2

REPORT INFORMATION
  Report Type: Report from Study
  Country: HN (occurrence: HN)
  Receive Date: 20140515
  Receipt Date: 20140522
  Transmission Date: 20141212
  Serious: Yes (Other)
  Sender: FDA-Public Use
  Company Number: PHHY2014HN058174

PATIENT
  Age: 53 Year
  Sex: Female
  Weight: 67.2 kg

DRUGS (3)
  1. GLIVEC [Suspect]
     Indication: CHRONIC MYELOID LEUKAEMIA
     Dosage: 400 MG, QD
     Route: 048
     Dates: start: 201302
  2. METFORMIN [Concomitant]
     Indication: DIABETES MELLITUS
     Dosage: 500 MG, QD
  3. ANTIHYPERTENSIVES [Concomitant]
     Indication: HYPERTENSION
     Dosage: UNK UKN, UNK

REACTIONS (6)
  - Diabetes mellitus inadequate control [Unknown]
  - Retinal detachment [Recovered/Resolved]
  - Retinal vascular occlusion [Recovered/Resolved with Sequelae]
  - Eye haemorrhage [Recovered/Resolved with Sequelae]
  - Blindness [Not Recovered/Not Resolved]
  - Cataract [Not Recovered/Not Resolved]
